FAERS Safety Report 7496211-1 (Version None)
Quarter: 2011Q2

REPORT INFORMATION
  Report Type: 
  Country: None (occurrence: None)
  Receive Date: 20110523
  Receipt Date: 20110516
  Transmission Date: 20111010
  Serious: Yes (Other)
  Sender: FDA-Public Use
  Company Number: PHHY2011MX42284

PATIENT
  Age: 96 Year
  Sex: Female

DRUGS (1)
  1. EXELON [Suspect]
     Indication: DEMENTIA ALZHEIMER'S TYPE
     Dosage: 9.5 MG/10 CM2 EACH 24 HOURS
     Route: 062
     Dates: start: 20080101

REACTIONS (1)
  - CEREBRAL INFARCTION [None]
